FAERS Safety Report 19770006 (Version 2)
Quarter: 2022Q4

REPORT INFORMATION
  Report Type: Report from Study
  Country: FR (occurrence: FR)
  Receive Date: 20210901
  Receipt Date: 20221223
  Transmission Date: 20230113
  Serious: Yes (Hospitalization, Other)
  Sender: FDA-Public Use
  Company Number: FR-NOVARTISPH-NVSC2020FR335443

PATIENT
  Age: 67 Year
  Sex: Male

DRUGS (1)
  1. PLACEBO [Suspect]
     Active Substance: UNSPECIFIED INGREDIENT
     Indication: COVID-19
     Dosage: UNK
     Dates: start: 20201007, end: 20201020

REACTIONS (5)
  - Pneumonia [Recovered/Resolved with Sequelae]
  - Pulmonary embolism [Recovered/Resolved with Sequelae]
  - Acute respiratory distress syndrome [Recovering/Resolving]
  - COVID-19 pneumonia [Recovering/Resolving]
  - Deep vein thrombosis [Recovering/Resolving]

NARRATIVE: CASE EVENT DATE: 20201017
